FAERS Safety Report 5979616-7 (Version None)
Quarter: 2008Q4

REPORT INFORMATION
  Report Type: 
  Country: None (occurrence: None)
  Receive Date: 20081204
  Receipt Date: 20081124
  Transmission Date: 20090506
  Serious: Yes (Death)
  Sender: FDA-Public Use
  Company Number: NG-WATSON-2008-06971

PATIENT
  Age: 5 Year
  Sex: Female

DRUGS (2)
  1. QUININE SULFATE (WATSON LABORATORIES) [Suspect]
     Indication: MALARIA
     Dosage: 20 MG/KG OVER 4 HOURS
     Route: 042
  2. QUININE SULFATE (WATSON LABORATORIES) [Suspect]
     Dosage: 10 MG/KG, OVER 4 HRS, Q12H
     Route: 042

REACTIONS (3)
  - PARTIAL SEIZURES WITH SECONDARY GENERALISATION [None]
  - VENTRICULAR FIBRILLATION [None]
  - VENTRICULAR TACHYCARDIA [None]
